FAERS Safety Report 9146585 (Version 2)
Quarter: 2013Q1

REPORT INFORMATION
  Report Type: Spontaneous
  Country: VE (occurrence: VE)
  Receive Date: 20130307
  Receipt Date: 20130318
  Transmission Date: 20140127
  Serious: Yes (Hospitalization, Other)
  Sender: FDA-Public Use
  Company Number: VE-PFIZER INC-2013077499

PATIENT
  Age: 73 Year
  Sex: Female

DRUGS (4)
  1. CADUET [Suspect]
     Indication: HYPERCHOLESTEROLAEMIA
     Dosage: [AMLODIPINE BESILATE 5 MG/ ATORVASTATIN CALCIUM 10 MG], ONCE DAILY
     Route: 048
  2. CADUET [Suspect]
     Indication: HYPERTENSION
  3. METHOTREXATE [Suspect]
     Dosage: 2.5 MG, UNK
     Route: 048
  4. ENBREL [Concomitant]
     Indication: RHEUMATOID ARTHRITIS
     Dosage: 50 MG, UNK
     Route: 058
     Dates: start: 1999, end: 201210

REACTIONS (10)
  - Haemoglobin decreased [Recovered/Resolved]
  - Poisoning [Recovered/Resolved]
  - Blood pressure decreased [Recovered/Resolved]
  - Platelet count decreased [Recovered/Resolved]
  - Pain [Recovered/Resolved]
  - Abdominal discomfort [Recovered/Resolved]
  - Feeling cold [Recovered/Resolved]
  - Hyperhidrosis [Recovered/Resolved]
  - Alopecia [Recovered/Resolved]
  - Mouth ulceration [Recovered/Resolved]
